FAERS Safety Report 4760867-4 (Version None)
Quarter: 2005Q3

REPORT INFORMATION
  Report Type: 
  Country: None (occurrence: None)
  Receive Date: 20050826
  Receipt Date: 20041124
  Transmission Date: 20060218
  Serious: Yes (Death)
  Sender: FDA-Public Use
  Company Number: USA-2004-0017821

PATIENT
  Age: 37 Year
  Sex: Female
  Weight: 113.4 kg

DRUGS (11)
  1. OXYCONTIN [Suspect]
     Dosage: UNK MG, SEE TEXT
  2. OXYMORPHONE HYDROCHLORIDE [Suspect]
  3. VENLAFAXINE HCL [Suspect]
  4. CARBAMAZEPINE [Suspect]
  5. GABAPENTIN [Suspect]
  6. MIRTAZAPINE [Suspect]
  7. QUETIAPINE FUMARATE [Suspect]
  8. TEMAZEPAM [Suspect]
  9. DIPHENHYDRAMINE HCL [Suspect]
  10. LAMOTRIGINE [Suspect]
  11. COUMADIN [Concomitant]

REACTIONS (1)
  - MULTIPLE DRUG OVERDOSE [None]
